FAERS Safety Report 24690424 (Version 2)
Quarter: 2024Q4

REPORT INFORMATION
  Report Type: Spontaneous
  Country: US (occurrence: US)
  Receive Date: 20241203
  Receipt Date: 20241219
  Transmission Date: 20250115
  Serious: No
  Sender: HETERO
  Company Number: US-HETERO-HET2024US04376

PATIENT
  Age: 60 Year
  Sex: Male
  Weight: 113.3 kg

DRUGS (4)
  1. BUPROPION HYDROCHLORIDE [Suspect]
     Active Substance: BUPROPION HYDROCHLORIDE
     Indication: Depression
     Dosage: 400 MILLIGRAM, B.I.D. (ONE IN MORNING AND OTHER AT NIGHT)
     Route: 065
     Dates: start: 202410, end: 20241122
  2. PROZAC [Concomitant]
     Active Substance: FLUOXETINE HYDROCHLORIDE
     Indication: Product used for unknown indication
     Dosage: 20 MILLIGRAM, TID (3 PILLS IN A DAY)
     Route: 065
  3. RANAX [Concomitant]
     Indication: Product used for unknown indication
     Dosage: 0.25 MILLIGRAM, QD (ONCE A DAY)
     Route: 065
  4. BUSPIRONE [Concomitant]
     Active Substance: BUSPIRONE HYDROCHLORIDE
     Indication: Product used for unknown indication
     Dosage: 15 MILLIGRAM, BID (TWICE A DAY)
     Route: 065

REACTIONS (2)
  - Insomnia [Unknown]
  - Drug ineffective [Unknown]

NARRATIVE: CASE EVENT DATE: 20241001
